FAERS Safety Report 7119351-5 (Version None)
Quarter: 2010Q4

REPORT INFORMATION
  Report Type: 
  Country: None (occurrence: None)
  Receive Date: 20101123
  Receipt Date: 20101115
  Transmission Date: 20110411
  Serious: Yes (Other)
  Sender: FDA-Public Use
  Company Number: US-JNJFOC-20101105544

PATIENT
  Age: 83 Year
  Sex: Male
  Weight: 71.67 kg

DRUGS (10)
  1. TYLENOL (CAPLET) [Suspect]
     Route: 048
  2. TYLENOL (CAPLET) [Suspect]
     Indication: ARTHRITIS
     Route: 048
  3. HYTRIN [Concomitant]
     Indication: POLLAKIURIA
  4. FINASTERIDE [Concomitant]
     Indication: POLLAKIURIA
  5. ANTI-HYPERTENSIVE NOS [Concomitant]
     Indication: HYPERTENSION
  6. ATENOLOL [Concomitant]
     Indication: HYPERTENSION
  7. ISOSORBIDE DINITRATE [Concomitant]
     Indication: CARDIAC DISORDER
  8. SIMVASTATIN [Concomitant]
     Indication: BLOOD CHOLESTEROL ABNORMAL
  9. HYDROCHLOROTHIAZIDE [Concomitant]
     Indication: HYPERTENSION
  10. LISINOPRIL [Concomitant]
     Indication: CARDIAC DISORDER

REACTIONS (4)
  - DYSURIA [None]
  - GENITAL RASH [None]
  - NOCTURIA [None]
  - PENILE HAEMORRHAGE [None]
